FAERS Safety Report 4354174-1 (Version None)
Quarter: 2004Q2

REPORT INFORMATION
  Report Type: 
  Country: None (occurrence: None)
  Receive Date: 20040506
  Receipt Date: 20040409
  Transmission Date: 20050107
  Serious: Yes (Other)
  Sender: FDA-Public Use
  Company Number: PHEH2004US04081

PATIENT
  Age: 66 Year
  Sex: Female
  Weight: 59 kg

DRUGS (13)
  1. CYCLOSPORINE [Suspect]
     Indication: RHEUMATOID ARTHRITIS
     Dosage: 100 MG, QD
     Route: 048
     Dates: start: 20000512, end: 20031218
  2. ENBREL [Suspect]
     Indication: RHEUMATOID ARTHRITIS
     Dosage: 25 MG, QD
     Route: 058
     Dates: start: 20021106, end: 20031218
  3. HYDROXYCHLOROQUINE SULFATE [Concomitant]
     Dosage: 400 MG, QD
     Route: 048
     Dates: start: 19950808
  4. LEVOTHYROXINE SODIUM [Concomitant]
  5. FLUTICASONE PROPIONATE [Concomitant]
     Route: 048
     Dates: start: 20030325
  6. ALBUTEROL SULFATE [Concomitant]
  7. HYDROXYCHLOROQUINE SULFATE [Concomitant]
  8. SALMETEROL XINAFOATE [Concomitant]
     Dates: start: 19970407
  9. CONJUGATED ESTROGEN [Concomitant]
  10. ESOMEPRAZOLE MAGNESIUM [Concomitant]
     Dosage: 40 MG, QD
     Dates: start: 20020107
  11. METHOTREXATE [Suspect]
     Dosage: 15 MG, QW
     Route: 048
     Dates: start: 19950801, end: 20000913
  12. NEXIUM [Concomitant]
  13. SINGULAIR ^DIECKMANN^ [Concomitant]

REACTIONS (5)
  - CHRONIC OBSTRUCTIVE AIRWAYS DISEASE EXACERBATED [None]
  - COUGH [None]
  - DYSPNOEA EXACERBATED [None]
  - HYPOXIA [None]
  - INTERSTITIAL LUNG DISEASE [None]
